FAERS Safety Report 7746422-2 (Version None)
Quarter: 2011Q3

REPORT INFORMATION
  Report Type: 
  Country: None (occurrence: None)
  Receive Date: 20110912
  Receipt Date: 20110912
  Transmission Date: 20111222
  Serious: No
  Sender: FDA-Public Use
  Company Number: None

PATIENT
  Age: 74 Year
  Sex: Female
  Weight: 68 kg

DRUGS (6)
  1. LOVENOX [Concomitant]
  2. PANTOPRAZOLE [Suspect]
     Indication: PEPTIC ULCER
     Dosage: 40MG QDAY IV
     Route: 042
     Dates: start: 20110420
  3. HYDROCODONE BITARTRATE AND ACETAMINOPHEN [Suspect]
     Indication: PAIN
     Dosage: 5/385 Q4 PRN PO
     Route: 048
     Dates: start: 20110421, end: 20110422
  4. CLONAZEPAM [Concomitant]
  5. ZANTAC [Concomitant]
  6. PERI-COLACE [Concomitant]

REACTIONS (3)
  - PHARYNGEAL OEDEMA [None]
  - LIP SWELLING [None]
  - NAUSEA [None]
